FAERS Safety Report 9696009 (Version 1)
Quarter: 2013Q4

REPORT INFORMATION
  Report Type: Spontaneous
  Country: US (occurrence: None)
  Receive Date: 20131115
  Receipt Date: 20131115
  Transmission Date: 20140711
  Serious: Yes (Life-Threatening, Hospitalization)
  Sender: FDA-Public Use
  Company Number: 2013P1020943

PATIENT
  Age: 16 Year
  Sex: Female

DRUGS (3)
  1. ESCITALOPRAM [Suspect]
     Dosage: 500 MG; PO
     Route: 048
  2. TRAMADOL/ACETAMINOPHEN [Suspect]
  3. HYDROCODONE/ACETAMINOPHEN [Suspect]

REACTIONS (11)
  - Overdose [None]
  - Vomiting [None]
  - Lethargy [None]
  - Bundle branch block right [None]
  - Electrocardiogram QRS complex prolonged [None]
  - Blood glucose increased [None]
  - Blood potassium decreased [None]
  - Presyncope [None]
  - Blood pressure decreased [None]
  - Sinus bradycardia [None]
  - Cardiotoxicity [None]
